FAERS Safety Report 20200532 (Version 2)
Quarter: 2021Q4

REPORT INFORMATION
  Report Type: Report from Study
  Country: GB (occurrence: GB)
  Receive Date: 20211217
  Receipt Date: 20211219
  Transmission Date: 20220304
  Serious: Yes (Life-Threatening, Hospitalization, Other)
  Sender: FDA-Public Use
  Company Number: GB-JNJFOC-20211221468

PATIENT

DRUGS (1)
  1. STELARA [Suspect]
     Active Substance: USTEKINUMAB
     Indication: Crohn^s disease
     Route: 058

REACTIONS (15)
  - Device related infection [Unknown]
  - Pneumonia [Unknown]
  - Biliary sepsis [Unknown]
  - Herpes zoster [Unknown]
  - Orchitis [Unknown]
  - Prostate cancer [Unknown]
  - Malignant melanoma [Unknown]
  - Non-Hodgkin^s lymphoma [Unknown]
  - COVID-19 [Unknown]
  - Soft tissue infection [Unknown]
  - Urinary tract infection [Unknown]
  - Rhinitis [Unknown]
  - Diarrhoea [Unknown]
  - Lower respiratory tract infection [Unknown]
  - Therapeutic response decreased [Unknown]
